FAERS Safety Report 5256328-9 (Version None)
Quarter: 2007Q1

REPORT INFORMATION
  Report Type: 
  Country: None (occurrence: None)
  Receive Date: 20070306
  Receipt Date: 20070223
  Transmission Date: 20070707
  Serious: Yes (Disabling, Other)
  Sender: FDA-Public Use
  Company Number: US-PFIZER INC-2005113933

PATIENT
  Sex: Male
  Weight: 62.6 kg

DRUGS (3)
  1. LIPITOR [Suspect]
     Indication: BLOOD CHOLESTEROL INCREASED
     Route: 048
  2. POTASSIUM ACETATE [Concomitant]
     Route: 048
  3. ANTIHYPERTENSIVES [Concomitant]
     Route: 065

REACTIONS (18)
  - ABASIA [None]
  - AMNESIA [None]
  - ARTHRITIS [None]
  - ARTHROPATHY [None]
  - ASTHENIA [None]
  - BALANCE DISORDER [None]
  - ENZYME ABNORMALITY [None]
  - FATIGUE [None]
  - HYPOAESTHESIA [None]
  - IMPAIRED WORK ABILITY [None]
  - JOINT STIFFNESS [None]
  - MUSCLE INJURY [None]
  - MUSCLE SPASMS [None]
  - MUSCULOSKELETAL STIFFNESS [None]
  - MYALGIA [None]
  - MYOSITIS [None]
  - NEURALGIA [None]
  - SPINAL COLUMN STENOSIS [None]
